FAERS Safety Report 16141342 (Version 6)
Quarter: 2019Q4

REPORT INFORMATION
  Report Type: Spontaneous
  Country: US (occurrence: US)
  Receive Date: 20190401
  Receipt Date: 20191203
  Transmission Date: 20200122
  Serious: Yes (Other)
  Sender: FDA-Public Use
  Company Number: US-PFIZER INC-2019135327

PATIENT
  Age: 77 Year
  Sex: Female
  Weight: 67.12 kg

DRUGS (17)
  1. VITAMIN D3 [Concomitant]
     Active Substance: CHOLECALCIFEROL
     Dosage: UNK, DAILY (2 DAILY)
  2. ASPIRIN [ACETYLSALICYLIC ACID] [Concomitant]
     Active Substance: ASPIRIN
     Dosage: UNK
  3. MOVE FREE NIGHT [Concomitant]
     Dosage: UNK, DAILY
  4. XELJANZ XR [Suspect]
     Active Substance: TOFACITINIB CITRATE
     Indication: OSTEOPOROSIS
     Dosage: 11 MG, DAILY
     Dates: start: 20190225
  5. PROLIA [Concomitant]
     Active Substance: DENOSUMAB
     Dosage: UNK (1 SHOT EVERY 6 MONTHS)
  6. AMOXICILLIN. [Concomitant]
     Active Substance: AMOXICILLIN
     Dosage: 500 MG, UNK (4 BEFORE TEETH CLEANING EVERY 4 MONTHS)
  7. STOOL SOFTENER (DOCUSATE) [Concomitant]
     Active Substance: DOCUSATE
     Dosage: 100 MG, UNK (3 DAILY)
  8. XELJANZ XR [Suspect]
     Active Substance: TOFACITINIB CITRATE
     Indication: FIBROMYALGIA
  9. AMLODIPINE BESYLATE. [Concomitant]
     Active Substance: AMLODIPINE BESYLATE
     Dosage: 5 MG, DAILY
  10. OMEGA 3 KRILL OIL [Concomitant]
     Dosage: 750 MG, DAILY
  11. CALCIUM CITRATE [Concomitant]
     Active Substance: CALCIUM CITRATE
     Dosage: UNK
  12. LEVOTHYROXINE SODIUM. [Concomitant]
     Active Substance: LEVOTHYROXINE SODIUM
     Dosage: 75 UG, DAILY
  13. XELJANZ XR [Suspect]
     Active Substance: TOFACITINIB CITRATE
     Indication: RHEUMATOID ARTHRITIS
     Dosage: 11 MG, 1X/DAY
  14. MAGNESIUM [Concomitant]
     Active Substance: MAGNESIUM
     Dosage: UNK
  15. ZINC. [Concomitant]
     Active Substance: ZINC
     Dosage: UNK
  16. UBIQUINONE [Concomitant]
     Active Substance: UBIDECARENONE
     Dosage: 100 MG, DAILY
  17. KIRKLAND SIGNATURE ALLERCLEAR [Concomitant]
     Active Substance: LORATADINE
     Dosage: 10 MG, AS NEEDED (1 DAILY AS NEEDED)

REACTIONS (8)
  - Eye disorder [Unknown]
  - Cataract [Unknown]
  - Emotional disorder [Not Recovered/Not Resolved]
  - Depression [Unknown]
  - Sleep disorder [Unknown]
  - Mental disorder [Unknown]
  - Malaise [Not Recovered/Not Resolved]
  - Anxiety [Unknown]
